FAERS Safety Report 5220091-8 (Version None)
Quarter: 2006Q4

REPORT INFORMATION
  Report Type: 
  Country: None (occurrence: None)
  Receive Date: 20061121
  Receipt Date: 20060927
  Transmission Date: 20070319
  Serious: No
  Sender: FDA-Public Use
  Company Number: TPA2006A01671

PATIENT
  Sex: Male

DRUGS (1)
  1. ROZEREM [Suspect]
     Dosage: 8 MG, UNKNOWN
     Dates: start: 20060901

REACTIONS (3)
  - DRUG INEFFECTIVE [None]
  - INITIAL INSOMNIA [None]
  - MIDDLE INSOMNIA [None]
